FAERS Safety Report 15985910 (Version 1)
Quarter: 2019Q1

REPORT INFORMATION
  Report Type: Spontaneous
  Country: US (occurrence: US)
  Receive Date: 20190220
  Receipt Date: 20190220
  Transmission Date: 20190418
  Serious: No
  Sender: FDA-Public Use
  Company Number: US-LEXICON PHARMACEUTICALS, INC-19-1606-00120

PATIENT
  Sex: Female

DRUGS (1)
  1. TELOTRISTAT ETHYL [Suspect]
     Active Substance: TELOTRISTAT ETHYL
     Indication: CARDIAC NEOPLASM MALIGNANT
     Route: 048
     Dates: start: 20171017

REACTIONS (8)
  - Blood alkaline phosphatase increased [Unknown]
  - Protein total decreased [Unknown]
  - Hypotension [Unknown]
  - Blood calcium decreased [Unknown]
  - Haemoglobin decreased [Unknown]
  - Proctalgia [Unknown]
  - Haematocrit decreased [Unknown]
  - Blood albumin decreased [Unknown]
